FAERS Safety Report 5093094-4 (Version None)
Quarter: 2006Q3

REPORT INFORMATION
  Report Type: 
  Country: None (occurrence: None)
  Receive Date: 20060828
  Receipt Date: 20060815
  Transmission Date: 20061208
  Serious: Yes (Other)
  Sender: FDA-Public Use
  Company Number: GXKR2006GB04804

PATIENT
  Age: 86 Year
  Sex: Female

DRUGS (8)
  1. ASPIRIN [Suspect]
     Indication: PROPHYLAXIS
     Dosage: 75 MG, ORAL
     Route: 048
  2. ALFACALCIDOL (ALFACALCIDOL) [Concomitant]
  3. AMOXICILLIN [Concomitant]
  4. CLEXANE (ENOXAPARIN SODIUM, HEPARIN-FRACTION, SODIUM SALT) [Concomitant]
  5. DOXAZOSIN (DOXAZOSIN) [Concomitant]
  6. MEBEVERINE (MEBEVERINE) [Concomitant]
  7. SIMVASTATIN [Concomitant]
  8. SODIUM BICARBONATE IN PLASTIC CONTAINER [Concomitant]

REACTIONS (2)
  - ANAEMIA [None]
  - HAEMATEMESIS [None]
